FAERS Safety Report 24741103 (Version 2)
Quarter: 2024Q4

REPORT INFORMATION
  Report Type: Report from Study
  Country: PK (occurrence: PK)
  Receive Date: 20241217
  Receipt Date: 20241223
  Transmission Date: 20250115
  Serious: Yes (Death)
  Sender: ROCHE
  Company Number: PK-ROCHE-10000156085

PATIENT
  Age: 64 Year
  Sex: Male

DRUGS (1)
  1. MABTHERA [Suspect]
     Active Substance: RITUXIMAB
     Indication: Diffuse large B-cell lymphoma
     Route: 058
     Dates: start: 20240827

REACTIONS (2)
  - Diffuse large B-cell lymphoma [Fatal]
  - Paralysis [Fatal]

NARRATIVE: CASE EVENT DATE: 20241206
